FAERS Safety Report 7761136-0 (Version None)
Quarter: 2011Q3

REPORT INFORMATION
  Report Type: 
  Country: None (occurrence: None)
  Receive Date: 20110915
  Receipt Date: 20110830
  Transmission Date: 20111222
  Serious: Yes (Hospitalization)
  Sender: FDA-Public Use
  Company Number: FK201101851

PATIENT
  Age: 68 Year
  Sex: Female

DRUGS (6)
  1. METHOTREXATE [Suspect]
     Indication: PRODUCT USED FOR UNKNOWN INDICATION
     Dosage: 10 MG, WEEKLY, SUBCUTANEOUS
     Route: 058
  2. ASPIRIN [Suspect]
     Indication: PRODUCT USED FOR UNKNOWN INDICATION
  3. ADALIMUMAB (ADALIMUMAB) (ADALIMUMAB) [Suspect]
     Indication: PRODUCT USED FOR UNKNOWN INDICATION
  4. NSAIDS (NSAID'S) (NSAID'S) [Suspect]
     Indication: PRODUCT USED FOR UNKNOWN INDICATION
  5. METFORMIN HCL [Suspect]
     Indication: PRODUCT USED FOR UNKNOWN INDICATION
  6. TORSEMIDE [Suspect]
     Indication: PRODUCT USED FOR UNKNOWN INDICATION

REACTIONS (15)
  - PANCYTOPENIA [None]
  - MOUTH ULCERATION [None]
  - EPISTAXIS [None]
  - ASPERGILLOSIS [None]
  - ODYNOPHAGIA [None]
  - RESPIRATORY TRACT INFECTION [None]
  - ATRIAL FIBRILLATION [None]
  - CHEILITIS [None]
  - PALLOR [None]
  - RENAL FAILURE ACUTE [None]
  - MUCOSAL HAEMORRHAGE [None]
  - BACK PAIN [None]
  - GENERAL PHYSICAL HEALTH DETERIORATION [None]
  - OSTEOMYELITIS [None]
  - HAPTOGLOBIN INCREASED [None]
